FAERS Safety Report 5813308-X (Version None)
Quarter: 2008Q3

REPORT INFORMATION
  Report Type: 
  Country: None (occurrence: None)
  Receive Date: 20080717
  Receipt Date: 20080708
  Transmission Date: 20090109
  Serious: Yes (Hospitalization, Other)
  Sender: FDA-Public Use
  Company Number: US-ALLERGAN-0806822US

PATIENT
  Sex: Female

DRUGS (7)
  1. ALPHAGAN P [Suspect]
     Indication: GLAUCOMA
     Dosage: UNK, BID
     Route: 047
     Dates: start: 20080521, end: 20080530
  2. ALPHAGAN P [Suspect]
     Indication: INTRAOCULAR PRESSURE TEST ABNORMAL
  3. IODINE RINSE [Suspect]
     Indication: POSTOPERATIVE CARE
     Route: 004
     Dates: start: 20080530
  4. WARFARIN SODIUM [Concomitant]
     Indication: DRUG USE FOR UNKNOWN INDICATION
     Dosage: UNK, QD
     Route: 048
     Dates: start: 20061201
  5. LOTREL [Concomitant]
     Indication: HYPERTENSION
     Dosage: UNK, QD
     Route: 048
     Dates: start: 20061201
  6. PRILOSEC [Concomitant]
     Indication: GASTROOESOPHAGEAL REFLUX DISEASE
     Dosage: UNK, QD
     Route: 048
     Dates: start: 20061201
  7. LEVOTHYROXINE SODIUM [Concomitant]
     Indication: THYROID DISORDER
     Dosage: UNK, QD
     Route: 048
     Dates: start: 20061201

REACTIONS (4)
  - ANAPHYLACTIC SHOCK [None]
  - DYSPNOEA [None]
  - NAUSEA [None]
  - UVEITIS [None]
